FAERS Safety Report 5912720-8 (Version None)
Quarter: 2008Q4

REPORT INFORMATION
  Report Type: 
  Country: None (occurrence: None)
  Receive Date: 20081008
  Receipt Date: 20080926
  Transmission Date: 20090506
  Serious: Yes (Death)
  Sender: FDA-Public Use
  Company Number: JP-ELI_LILLY_AND_COMPANY-JP200808002103

PATIENT
  Age: 71 Year
  Sex: Male

DRUGS (1)
  1. ZYPREXA [Suspect]
     Indication: DELIRIUM
     Dosage: 1 D/F, UNK
     Route: 048
     Dates: start: 20080724

REACTIONS (1)
  - MYOCARDIAL INFARCTION [None]
